FAERS Safety Report 18036141 (Version 1)
Quarter: 2020Q3

REPORT INFORMATION
  Report Type: Spontaneous
  Country: ES (occurrence: ES)
  Receive Date: 20200717
  Receipt Date: 20200717
  Transmission Date: 20201103
  Serious: Yes (Other)
  Sender: FDA-Public Use
  Company Number: ES-SUN PHARMACEUTICAL INDUSTRIES LTD-2020RR-253659

PATIENT
  Age: 62 Year
  Sex: Female

DRUGS (4)
  1. VERZENIOS 150 MG COMPRIMIDOS RECUBIERTOS CON PELICULA, 56 COMPRIMIDOS [Suspect]
     Active Substance: ABEMACICLIB
     Indication: BREAST CANCER
     Dosage: 150 MILLIGRAM, BID
     Route: 048
     Dates: start: 20191125, end: 20200210
  2. ATORVASTATIN [Suspect]
     Active Substance: ATORVASTATIN
     Indication: PRODUCT USED FOR UNKNOWN INDICATION
     Dosage: 40 MILLIGRAM, DAILY
     Route: 048
     Dates: start: 201906
  3. INNOHEP 14.000 UI ANTI?XA/0,7 ML SOLUCION INYECTABLE EN JERINGAS PR... [Concomitant]
     Indication: PULMONARY EMBOLISM
     Dosage: 0.7 MILLILITER, DAILY
     Route: 058
     Dates: start: 201908
  4. ANASTROZOLE. [Suspect]
     Active Substance: ANASTROZOLE
     Indication: BREAST CANCER
     Dosage: 1 MILLIGRAM, DAILY
     Route: 048
     Dates: start: 20191111, end: 20200210

REACTIONS (1)
  - Hepatocellular injury [Recovered/Resolved]

NARRATIVE: CASE EVENT DATE: 20200113
